FAERS Safety Report 9496409 (Version 1)
Quarter: 2013Q3

REPORT INFORMATION
  Report Type: Spontaneous
  Country: CN (occurrence: CN)
  Receive Date: 20130904
  Receipt Date: 20130904
  Transmission Date: 20140515
  Serious: Yes (Other)
  Sender: FDA-Public Use
  Company Number: CN-ROCHE-1268611

PATIENT
  Sex: Female
  Weight: 55 kg

DRUGS (2)
  1. PEG-INTERFERON ALFA 2A [Suspect]
     Indication: HEPATITIS VIRAL
     Route: 058
     Dates: start: 20120712, end: 20120718
  2. RIBAVIRIN [Concomitant]
     Route: 048

REACTIONS (2)
  - Thyroid function test abnormal [Unknown]
  - Cheilitis [Unknown]
